FAERS Safety Report 6298857-5 (Version None)
Quarter: 2009Q3

REPORT INFORMATION
  Report Type: 
  Country: None (occurrence: None)
  Receive Date: 20090806
  Receipt Date: 20090731
  Transmission Date: 20100115
  Serious: Yes (Disabling)
  Sender: FDA-Public Use
  Company Number: GB-TEVA-204327ISR

PATIENT
  Age: 41 Year
  Sex: Female

DRUGS (3)
  1. CISPLATIN [Suspect]
     Indication: ANAL CANCER
     Dates: end: 20071101
  2. FLUOROURACIL [Suspect]
     Indication: ANAL CANCER
     Dates: end: 20071101
  3. MITOMYCIN [Suspect]
     Indication: ANAL CANCER
     Dates: end: 20071101

REACTIONS (1)
  - ARTHRALGIA [None]
